FAERS Safety Report 8060238-1 (Version None)
Quarter: 2012Q1

REPORT INFORMATION
  Report Type: 
  Country: None (occurrence: None)
  Receive Date: 20120119
  Receipt Date: 20120119
  Transmission Date: 20120608
  Serious: Yes (Hospitalization)
  Sender: FDA-Public Use
  Company Number: None

PATIENT
  Age: 51 Year
  Sex: Female
  Weight: 106.7 kg

DRUGS (5)
  1. XANAX [Concomitant]
  2. VITAMIN D [Concomitant]
  3. LISINOPRIL AND HYDROCHLOROTHIAZIDE [Concomitant]
  4. NAPROXEN (ALEVE) [Suspect]
     Indication: BACK PAIN
     Dosage: 220MG ? X DAY PO RECENT
     Route: 048
  5. ATIVAN [Concomitant]

REACTIONS (2)
  - DUODENAL ULCER [None]
  - SMALL INTESTINAL HAEMORRHAGE [None]
